FAERS Safety Report 9013963 (Version 1)
Quarter: 2012Q4

REPORT INFORMATION
  Report Type: Spontaneous
  Country: US (occurrence: None)
  Receive Date: 20121231
  Receipt Date: 20121231
  Transmission Date: 20130627
  Serious: Yes (Hospitalization, Disabling)
  Sender: FDA-Public Use
  Company Number: UTC-026667

PATIENT

DRUGS (2)
  1. TYVASO [Suspect]
     Indication: PRIMARY PULMONARY HYPERTENSION
     Dates: start: 20111027, end: 201211
  2. TRACLEER [Concomitant]

REACTIONS (2)
  - Dizziness [None]
  - Activities of daily living impaired [None]
